FAERS Safety Report 7410429-5 (Version None)
Quarter: 2011Q2

REPORT INFORMATION
  Report Type: 
  Country: None (occurrence: None)
  Receive Date: 20110412
  Receipt Date: 20110401
  Transmission Date: 20111010
  Serious: No
  Sender: FDA-Public Use
  Company Number: US-BAYER-2011-028836

PATIENT
  Sex: Female
  Weight: 97.506 kg

DRUGS (6)
  1. ZYFLO [Concomitant]
  2. CONTRAST MEDIA [Suspect]
     Indication: COMPUTERISED TOMOGRAM
     Route: 048
  3. ULTRAVIST 150 [Suspect]
     Indication: COMPUTERISED TOMOGRAM
     Dosage: 109 ML, ONCE
     Route: 042
  4. LINEX [Concomitant]
  5. PROAIR HFA [Concomitant]
  6. ATGAM [Concomitant]

REACTIONS (5)
  - UPPER RESPIRATORY TRACT CONGESTION [None]
  - DYSPNOEA [None]
  - BLOOD PRESSURE INCREASED [None]
  - NAUSEA [None]
  - THROAT IRRITATION [None]
